FAERS Safety Report 8991115 (Version 2)
Quarter: 2013Q1

REPORT INFORMATION
  Report Type: Spontaneous
  Country: US (occurrence: None)
  Receive Date: 20121219
  Receipt Date: 20130311
  Transmission Date: 20140127
  Serious: Yes (Death, Other)
  Sender: FDA-Public Use
  Company Number: TPA2012A09821

PATIENT
  Age: 48 Year
  Sex: Female

DRUGS (5)
  1. ACTOS (PIOGLITAZONE HYDROCHLORIDE) [Suspect]
     Indication: TYPE 2 DIABETES MELLITUS
     Dosage: MORE THAN TWELVE MONTHS
  2. METFORMIN (METFORMIN) [Concomitant]
  3. DIABETA (GLIBENCLAMIDE) [Concomitant]
  4. LANTUS (INSULIN GLARGINE) [Concomitant]
  5. NOVOLIN (INSULIN HUMAN, INSULIN HUMAN INJECTION, ISOPHANE) [Concomitant]

REACTIONS (1)
  - Bladder cancer [None]
